FAERS Safety Report 24574813 (Version 1)
Quarter: 2024Q4

REPORT INFORMATION
  Report Type: Report from Study
  Country: NL (occurrence: NL)
  Receive Date: 20241104
  Receipt Date: 20241104
  Transmission Date: 20250115
  Serious: Yes (Death, Other)
  Sender: AUROBINDO
  Company Number: NL-AUROBINDO-AUR-APL-2024-054190

PATIENT

DRUGS (6)
  1. MYCOPHENOLIC ACID [Suspect]
     Active Substance: MYCOPHENOLIC ACID
     Indication: Graft versus host disease
     Dosage: 15 MILLIGRAM/KILOGRAM, TWO TIMES A DAY (FROM DAY 5 TO DAY 28 POST-TRANSPLANT)
     Route: 065
  2. MYCOPHENOLIC ACID [Suspect]
     Active Substance: MYCOPHENOLIC ACID
     Indication: Prophylaxis
  3. CYCLOPHOSPHAMIDE [Suspect]
     Active Substance: CYCLOPHOSPHAMIDE
     Indication: Graft versus host disease
     Dosage: 40 MILLIGRAM/KILOGRAM (FROM DAY 5 TO DAY 28 POST-TRANSPLANT)
     Route: 065
  4. CYCLOPHOSPHAMIDE [Suspect]
     Active Substance: CYCLOPHOSPHAMIDE
     Indication: Prophylaxis
  5. TACROLIMUS [Suspect]
     Active Substance: TACROLIMUS
     Indication: Graft versus host disease
     Dosage: 0.04 MILLIGRAM/KILOGRAM, TWO TIMES A DAY (ROM DAY 5 POST-TRANSPLANT)
     Route: 065
  6. TACROLIMUS [Suspect]
     Active Substance: TACROLIMUS
     Indication: Prophylaxis

REACTIONS (4)
  - Encephalopathy [Fatal]
  - Cytokine release syndrome [Unknown]
  - Pyrexia [Unknown]
  - Drug ineffective [Unknown]
